FAERS Safety Report 8422166-9 (Version None)
Quarter: 2012Q2

REPORT INFORMATION
  Report Type: 
  Country: None (occurrence: None)
  Receive Date: 20120323
  Receipt Date: 20110301
  Transmission Date: 20120825
  Serious: Yes (Other)
  Sender: FDA-Public Use
  Company Number: 163-21880-11021380

PATIENT
  Age: 45 Year
  Sex: Male

DRUGS (11)
  1. VITAMIN D [Concomitant]
  2. OMEPRAZOLE [Concomitant]
  3. NORVASC [Concomitant]
  4. TRIAMCINOLONE ACETONIDE [Concomitant]
  5. VICODIN [Concomitant]
  6. REVLIMID [Suspect]
     Indication: MULTIPLE MYELOMA
     Dosage: 25 MG, 1 IN 1 D, PO
     Route: 048
     Dates: start: 20110131, end: 20110201
  7. FLUCONAZOLE [Concomitant]
  8. DEXAMETHASONE [Concomitant]
  9. FOLIC ACID [Concomitant]
  10. PRILOSEC [Concomitant]
  11. ASPIRIN [Concomitant]

REACTIONS (2)
  - CHEST DISCOMFORT [None]
  - HYPERHIDROSIS [None]
